FAERS Safety Report 5974954-6 (Version None)
Quarter: 2008Q4

REPORT INFORMATION
  Report Type: 
  Country: None (occurrence: None)
  Receive Date: 20081202
  Receipt Date: 20081127
  Transmission Date: 20090506
  Serious: Yes (Other)
  Sender: FDA-Public Use
  Company Number: JP-PFIZER INC-2008100958

PATIENT
  Sex: Male

DRUGS (4)
  1. XALATAN [Suspect]
  2. PIVALEPHRINE [Suspect]
  3. VALSARTAN [Concomitant]
  4. DIAMOX [Concomitant]

REACTIONS (3)
  - BLOOD PRESSURE INCREASED [None]
  - DYSPNOEA [None]
  - PALPITATIONS [None]
